FAERS Safety Report 11044329 (Version 1)
Quarter: 2015Q2

REPORT INFORMATION
  Report Type: Spontaneous
  Country: CH (occurrence: CH)
  Receive Date: 20150417
  Receipt Date: 20150417
  Transmission Date: 20150821
  Serious: Yes (Hospitalization)
  Sender: FDA-Public Use
  Company Number: CH-PFIZER INC-2015128734

PATIENT
  Age: 86 Year
  Sex: Female
  Weight: 64.6 kg

DRUGS (9)
  1. ALDACTONE [Suspect]
     Active Substance: SPIRONOLACTONE
     Dosage: 50 MG, 1X/DAY
     Route: 048
     Dates: end: 20150224
  2. SINTROM [Concomitant]
     Active Substance: ACENOCOUMAROL
     Dosage: UNK
     Route: 048
  3. METOLAZON [Suspect]
     Active Substance: METOLAZONE
     Dosage: 5 MG, 1X/DAY
     Route: 048
  4. CONCOR [Concomitant]
     Active Substance: BISOPROLOL FUMARATE
     Dosage: 2.5 MG, 1X/DAY
     Route: 048
  5. ADARTREL [Concomitant]
     Active Substance: ROPINIROLE
     Dosage: 4 MG, 1X/DAY
     Route: 048
  6. DIOVAN [Suspect]
     Active Substance: VALSARTAN
     Dosage: 160 MG, 2X/DAY
     Route: 048
     Dates: start: 20141219, end: 20150224
  7. CIPRALEX [Concomitant]
     Active Substance: ESCITALOPRAM OXALATE
     Dosage: 10 MG, 1X/DAY
     Route: 048
  8. LEXOTANIL [Concomitant]
     Active Substance: BROMAZEPAM
     Dosage: 1.5 MG, 1X/DAY
     Route: 048
  9. TORASEMIDE [Suspect]
     Active Substance: TORSEMIDE
     Dosage: 10 MG, 2X/DAY
     Route: 048

REACTIONS (4)
  - Chronic kidney disease [Recovering/Resolving]
  - Condition aggravated [Recovering/Resolving]
  - Metabolic acidosis [Recovering/Resolving]
  - Hyperkalaemia [Recovered/Resolved]

NARRATIVE: CASE EVENT DATE: 20150223
